FAERS Safety Report 5794571-0 (Version None)
Quarter: 2008Q2

REPORT INFORMATION
  Report Type: 
  Country: None (occurrence: None)
  Receive Date: 20080626
  Receipt Date: 20080613
  Transmission Date: 20081010
  Serious: Yes (Death)
  Sender: FDA-Public Use
  Company Number: URSO-2008-063

PATIENT
  Age: 77 Year
  Sex: Female

DRUGS (16)
  1. URSO 250 [Suspect]
     Indication: BILIARY CIRRHOSIS PRIMARY
     Dosage: 600 MG/DAY ORAL
     Route: 048
     Dates: start: 20010526, end: 20030903
  2. FAMOTIDINE [Concomitant]
  3. BERIZYM (PANCREATIC ENZYMES-COMBINED DRUG) [Concomitant]
  4. SELBEX (TEPRENONE) [Concomitant]
  5. CAMLEED (ENPROSTIL) [Concomitant]
  6. ALLOID G (SODIUM ALGINATE) [Concomitant]
  7. RHYTHMY (RILMAZAFONE HYDROCHLORIDE) [Concomitant]
  8. MONILAC (LACTULOSE) [Concomitant]
  9. NORVASC [Concomitant]
  10. DIART (AZOSEMIDE) [Concomitant]
  11. LASIX [Concomitant]
  12. ALDACTONE [Concomitant]
  13. MOHRUS (KETOPROFEN) [Concomitant]
  14. LIVACT (ISOLEUCINE-LEUCINE-VALINE) [Concomitant]
  15. EURAX [Concomitant]
  16. ENSURE LIQUID (PARENTERAL NUTRITION) [Concomitant]

REACTIONS (2)
  - PLEURAL EFFUSION [None]
  - PNEUMONIA [None]
